FAERS Safety Report 23924763 (Version 1)
Quarter: 2024Q2

REPORT INFORMATION
  Report Type: Spontaneous
  Country: CN (occurrence: CN)
  Receive Date: 20240531
  Receipt Date: 20240531
  Transmission Date: 20240716
  Serious: Yes (Death, Other)
  Sender: FDA-Public Use
  Company Number: CN-BAYER-2024A078581

PATIENT
  Age: 63 Year
  Sex: Male

DRUGS (2)
  1. RIVAROXABAN [Suspect]
     Active Substance: RIVAROXABAN
     Indication: Portosplenomesenteric venous thrombosis
     Route: 048
  2. RIVAROXABAN [Suspect]
     Active Substance: RIVAROXABAN
     Indication: Thrombosis prophylaxis
     Route: 048

REACTIONS (7)
  - Gastric ulcer haemorrhage [Fatal]
  - Gastric ulcer haemorrhage [Recovered/Resolved]
  - Blood bilirubin increased [Unknown]
  - Off label use [Unknown]
  - Contraindicated product administered [Unknown]
  - Labelled drug-disease interaction issue [Unknown]
  - Contraindicated product prescribed [Unknown]
